FAERS Safety Report 17673483 (Version 2)
Quarter: 2020Q2

REPORT INFORMATION
  Report Type: Spontaneous
  Country: CZ (occurrence: CZ)
  Receive Date: 20200415
  Receipt Date: 20200507
  Transmission Date: 20200713
  Serious: Yes (Other)
  Sender: FDA-Public Use
  Company Number: CZ-EXELIXIS-CABO-20028793

PATIENT
  Sex: Male

DRUGS (1)
  1. CABOMETYX [Suspect]
     Active Substance: CABOZANTINIB S-MALATE
     Indication: RENAL CELL CARCINOMA
     Dosage: UNK
     Dates: start: 20180822, end: 20190131

REACTIONS (7)
  - Diarrhoea [Unknown]
  - Hypertension [Unknown]
  - Diverticulitis [Unknown]
  - Tinnitus [Unknown]
  - Asthenia [Unknown]
  - Decreased appetite [Unknown]
  - Malignant neoplasm progression [Unknown]
